FAERS Safety Report 9762788 (Version 1)
Quarter: 2013Q4

REPORT INFORMATION
  Report Type: Spontaneous
  Country: US (occurrence: US)
  Receive Date: 20131216
  Receipt Date: 20131216
  Transmission Date: 20140711
  Serious: No
  Sender: FDA-Public Use
  Company Number: US-PFIZER INC-2013356759

PATIENT
  Age: 78 Year
  Sex: Male
  Weight: 84.81 kg

DRUGS (4)
  1. INDERAL LA [Suspect]
     Indication: HEART RATE INCREASED
     Dosage: 160 MG, CAPSULE ONCE DAILY IN MORNING
     Route: 048
     Dates: start: 1983
  2. PROPANOLOL HCL [Suspect]
     Indication: HEART RATE INCREASED
     Dosage: UNK
     Route: 048
  3. PRAVASTATIN [Concomitant]
     Dosage: 40 MG, UNK
  4. ACETYLSALICYLIC ACID [Concomitant]
     Dosage: UNK

REACTIONS (3)
  - Drug ineffective for unapproved indication [Unknown]
  - Heart rate irregular [Unknown]
  - Heart rate increased [Unknown]
